FAERS Safety Report 4876862-0 (Version None)
Quarter: 2006Q1

REPORT INFORMATION
  Report Type: 
  Country: None (occurrence: None)
  Receive Date: 20060109
  Receipt Date: 20060109
  Transmission Date: 20060701
  Serious: Yes (Other)
  Sender: FDA-Public Use
  Company Number: None

PATIENT
  Age: 19 Month
  Sex: Female
  Weight: 16 kg

DRUGS (2)
  1. RESPITANN PD  CARBETAPENTANE CITRATE - 7.5 MG PSEUDOEPHEDRINE HCL 30 M [Suspect]
     Indication: SINUSITIS
     Dosage: 0.25 - 0.5 TSP  BID  PO    1 DOSE
     Route: 048
     Dates: start: 20041123, end: 20041123
  2. . [Concomitant]

REACTIONS (4)
  - DYSGEUSIA [None]
  - ERYTHEMA [None]
  - PHARMACEUTICAL PRODUCT COMPLAINT [None]
  - SKIN WARM [None]
